FAERS Safety Report 7368623-8 (Version None)
Quarter: 2011Q1

REPORT INFORMATION
  Report Type: 
  Country: None (occurrence: None)
  Receive Date: 20110314
  Receipt Date: 20110304
  Transmission Date: 20110831
  Serious: Yes (Hospitalization, Other)
  Sender: FDA-Public Use
  Company Number: FK201100374

PATIENT
  Age: 66 Year
  Sex: Female

DRUGS (7)
  1. FLUDARABINE PHOSPHATE INJECTION (FLUDARABINE PHOSPHATE) (FLUDARABINE P [Suspect]
     Indication: CHEMOTHERAPY MULTIPLE AGENTS SYSTEMIC
  2. PREDNISOLONE [Concomitant]
  3. CYCLOPHOSPHAMIDE [Concomitant]
  4. RITUXIMAB (RITUXIMAB) [Concomitant]
  5. CYCLOSPORINE [Concomitant]
  6. TRIMETHOPRIM-SULFAMETHOXAZOLE (BACTRIM /00086101/) [Concomitant]
  7. IMMUNE GLOBULIN (HUMAN) [Concomitant]

REACTIONS (13)
  - BIOPSY SKIN ABNORMAL [None]
  - RASH PAPULAR [None]
  - CHOLELITHIASIS [None]
  - SWELLING FACE [None]
  - LYMPHADENOPATHY [None]
  - JOINT SWELLING [None]
  - OSTEOMYELITIS BACTERIAL [None]
  - SKIN LESION [None]
  - BIOPSY LYMPH GLAND ABNORMAL [None]
  - NO THERAPEUTIC RESPONSE [None]
  - SUBCUTANEOUS NODULE [None]
  - BACILLARY ANGIOMATOSIS [None]
  - CELLULITIS [None]
